FAERS Safety Report 8611165-X (Version None)
Quarter: 2012Q3

REPORT INFORMATION
  Report Type: 
  Country: None (occurrence: None)
  Receive Date: 20120806
  Receipt Date: 20120725
  Transmission Date: 20120928
  Serious: Yes (Hospitalization)
  Sender: FDA-Public Use
  Company Number: 2012SA053070

PATIENT
  Age: 47 Year
  Sex: Male

DRUGS (3)
  1. BENAZEPRIL HYDROCHLORIDE [Concomitant]
  2. CAMELLIA SINENSIS/PANAX GINSENG EXTRACT [Suspect]
     Dates: start: 20120201, end: 20120201
  3. ALL OTHER THERAPEUTIC PRODUCTS [Suspect]
     Dates: start: 20120101, end: 20120101

REACTIONS (3)
  - PANCREATITIS ACUTE [None]
  - DYSPNOEA [None]
  - FLATULENCE [None]
